FAERS Safety Report 15888389 (Version 1)
Quarter: 2019Q1

REPORT INFORMATION
  Report Type: Spontaneous
  Country: US (occurrence: US)
  Receive Date: 20190130
  Receipt Date: 20190130
  Transmission Date: 20190417
  Serious: No
  Sender: FDA-Public Use
  Company Number: None

PATIENT
  Age: 23 Year
  Sex: Female
  Weight: 65.25 kg

DRUGS (1)
  1. SIMPLY SALINE NASAL RELIEF SPRAY - 4.25 FL OZ [Suspect]
     Active Substance: SODIUM CHLORIDE
     Indication: EPISTAXIS
     Dosage: ?          OTHER ROUTE:THROUGH THE NOSE?
     Dates: start: 20190120, end: 20190130

REACTIONS (1)
  - Dysgeusia [None]

NARRATIVE: CASE EVENT DATE: 20190125
